FAERS Safety Report 17409542 (Version 1)
Quarter: 2020Q1

REPORT INFORMATION
  Report Type: Report from Study
  Country: IT (occurrence: IT)
  Receive Date: 20200212
  Receipt Date: 20200212
  Transmission Date: 20200409
  Serious: Yes (Hospitalization)
  Sender: FDA-Public Use
  Company Number: IT-SHIRE-IT201931994

PATIENT

DRUGS (1)
  1. TEDUGLUTIDE [Suspect]
     Active Substance: TEDUGLUTIDE
     Indication: SHORT-BOWEL SYNDROME
     Dosage: 3 MILLIGRAM, 1X/DAY:QD
     Route: 058
     Dates: start: 20181029, end: 20190510

REACTIONS (3)
  - Flatulence [Not Recovered/Not Resolved]
  - Malnutrition [Not Recovered/Not Resolved]
  - Abdominal pain [Recovered/Resolved]

NARRATIVE: CASE EVENT DATE: 20190802
